FAERS Safety Report 8158020-X (Version None)
Quarter: 2012Q1

REPORT INFORMATION
  Report Type: 
  Country: None (occurrence: None)
  Receive Date: 20120222
  Receipt Date: 20120214
  Transmission Date: 20120608
  Serious: Yes (Hospitalization)
  Sender: FDA-Public Use
  Company Number: PHHO2011DE10174

PATIENT
  Age: 68 Year
  Sex: Male
  Weight: 76 kg

DRUGS (9)
  1. SUNITINIB MALATE [Concomitant]
     Dosage: 25 MG, QD
     Route: 048
     Dates: start: 20100817
  2. SUNITINIB MALATE [Concomitant]
     Dosage: 25 MG, QD
     Route: 048
     Dates: start: 20100624, end: 20100809
  3. CALCIUM [Concomitant]
     Dosage: UNK
     Dates: start: 20100201
  4. ZOLEDRONIC ACID [Suspect]
     Indication: METASTASES TO BONE
     Dosage: 4 MG, EVERY 4 WEEKS
     Route: 042
     Dates: start: 20080401
  5. TEMSIROLIMUS [Concomitant]
     Dosage: 5 MG, BID
     Route: 048
     Dates: start: 20100817
  6. ELIGARD [Concomitant]
     Indication: PROSTATE CANCER METASTATIC
     Dosage: UNK
     Dates: start: 20060301
  7. CYMBALTA [Concomitant]
     Indication: AFFECTIVE DISORDER
     Dosage: UNK
     Dates: start: 20100415
  8. SUNITINIB MALATE [Concomitant]
     Indication: PROSTATE CANCER
     Dosage: 37.5 MG, QD
     Route: 048
     Dates: start: 20100415, end: 20100616
  9. TEMSIROLIMUS [Concomitant]
     Indication: PROSTATE CANCER
     Dosage: 5 MG, BID
     Route: 048
     Dates: start: 20100415, end: 20100809

REACTIONS (1)
  - OSTEONECROSIS OF JAW [None]
